FAERS Safety Report 14779126 (Version 2)
Quarter: 2018Q2

REPORT INFORMATION
  Report Type: Report from Study
  Country: FR (occurrence: FR)
  Receive Date: 20180419
  Receipt Date: 20180620
  Transmission Date: 20180711
  Serious: Yes (Hospitalization)
  Sender: FDA-Public Use
  Company Number: FR-PFIZER INC-2018153470

PATIENT
  Age: 45 Year
  Sex: Female
  Weight: 44 kg

DRUGS (6)
  1. LEUCOVORIN /00566702/ [Suspect]
     Active Substance: LEUCOVORIN
     Indication: COLORECTAL CANCER METASTATIC
     Dosage: 616 MG, CYCLIC
     Route: 041
     Dates: start: 20150331, end: 20150331
  2. FLUOROURACIL. [Suspect]
     Active Substance: FLUOROURACIL
     Indication: COLORECTAL CANCER METASTATIC
     Dosage: 492 MG, CYCLIC
     Route: 040
     Dates: start: 20150331, end: 20150331
  3. FLUOROURACIL. [Suspect]
     Active Substance: FLUOROURACIL
     Dosage: 2955 MG, CYCLIC
     Route: 041
     Dates: start: 20150331, end: 20150331
  4. BUPRENORPHINE. [Concomitant]
     Active Substance: BUPRENORPHINE
  5. AFLIBERCEPT [Suspect]
     Active Substance: AFLIBERCEPT
     Indication: COLORECTAL CANCER METASTATIC
     Dosage: 192 MG, CYCLIC
     Route: 041
     Dates: start: 20150331, end: 20150331
  6. IRINOTECAN HCL [Suspect]
     Active Substance: IRINOTECAN HYDROCHLORIDE
     Indication: COLORECTAL CANCER METASTATIC
     Dosage: 220 MG, CYCLIC
     Route: 041
     Dates: start: 20150331, end: 20150331

REACTIONS (6)
  - Abdominal pain [Not Recovered/Not Resolved]
  - Malnutrition [Not Recovered/Not Resolved]
  - Hepatocellular injury [Not Recovered/Not Resolved]
  - Fall [Recovered/Resolved with Sequelae]
  - Asthenia [Not Recovered/Not Resolved]
  - Pneumothorax [Recovered/Resolved]

NARRATIVE: CASE EVENT DATE: 20150408
